FAERS Safety Report 4385039-7 (Version None)
Quarter: 2004Q2

REPORT INFORMATION
  Report Type: 
  Country: None (occurrence: None)
  Receive Date: 20040625
  Receipt Date: 20040611
  Transmission Date: 20050107
  Serious: Yes (Hospitalization, Disabling)
  Sender: FDA-Public Use
  Company Number: JP-GLAXOSMITHKLINE-B0335503A

PATIENT
  Age: 72 Year
  Sex: Male
  Weight: 45 kg

DRUGS (10)
  1. VALTREX [Suspect]
     Indication: HERPES ZOSTER
     Dosage: 500MG PER DAY
     Route: 048
     Dates: start: 20040609, end: 20040610
  2. LASIX [Concomitant]
     Indication: HYPERTENSION
     Dosage: 40MG PER DAY
     Route: 048
  3. ALLOPURINOL [Concomitant]
     Dosage: 200MG PER DAY
     Route: 048
  4. GLYCERYL TRINITRATE [Concomitant]
     Indication: ANGINA PECTORIS
     Dosage: 27MG PER DAY
     Route: 062
  5. TANKARU [Concomitant]
     Indication: SECONDARY HYPERTHYROIDISM
     Dosage: 7.5MG PER DAY
     Route: 048
  6. NU-LOTAN [Concomitant]
     Indication: HYPERTENSION
     Dosage: 25MG PER DAY
     Route: 048
  7. RISUMIC [Concomitant]
     Indication: PROCEDURAL HYPERTENSION
     Dosage: 10MG PER DAY
     Route: 048
  8. SERINE [Concomitant]
     Indication: PROCEDURAL HYPOTENSION
     Dosage: 100MG PER DAY
     Route: 048
  9. BAYASPIRIN [Concomitant]
     Indication: ANGINA PECTORIS
     Dosage: 100MG PER DAY
     Route: 048
  10. HEMODIALYSIS [Concomitant]
     Route: 065

REACTIONS (2)
  - DELIRIUM [None]
  - DISORIENTATION [None]
